FAERS Safety Report 8286070-1 (Version None)
Quarter: 2012Q2

REPORT INFORMATION
  Report Type: 
  Country: None (occurrence: None)
  Receive Date: 20120416
  Receipt Date: 20120405
  Transmission Date: 20120825
  Serious: No
  Sender: FDA-Public Use
  Company Number: US-BIOGENIDEC-2012BI007611

PATIENT
  Sex: Female

DRUGS (1)
  1. TYSABRI [Suspect]
     Indication: MULTIPLE SCLEROSIS
     Route: 042
     Dates: start: 20071106, end: 20111011

REACTIONS (6)
  - MIDDLE INSOMNIA [None]
  - TREMOR [None]
  - FATIGUE [None]
  - SLEEP DISORDER [None]
  - VAGINAL ODOUR [None]
  - DIZZINESS [None]
